FAERS Safety Report 5485973-0 (Version None)
Quarter: 2007Q4

REPORT INFORMATION
  Report Type: 
  Country: None (occurrence: None)
  Receive Date: 20071012
  Receipt Date: 20070926
  Transmission Date: 20080405
  Serious: Yes (Hospitalization)
  Sender: FDA-Public Use
  Company Number: 8025639

PATIENT
  Sex: Male

DRUGS (1)
  1. KEPPRA [Suspect]

REACTIONS (8)
  - APHASIA [None]
  - BRAIN DAMAGE [None]
  - BRAIN STEM SYNDROME [None]
  - HEPATOCELLULAR DAMAGE [None]
  - LOSS OF CONSCIOUSNESS [None]
  - MUSCLE ENZYME INCREASED [None]
  - RENAL FAILURE [None]
  - STATUS EPILEPTICUS [None]
